FAERS Safety Report 6329220-6 (Version None)
Quarter: 2009Q3

REPORT INFORMATION
  Report Type: 
  Country: None (occurrence: None)
  Receive Date: 20090826
  Receipt Date: 20090814
  Transmission Date: 20100115
  Serious: Yes (Death, Life-Threatening, Hospitalization)
  Sender: FDA-Public Use
  Company Number: BE-PFIZER INC-2009202090

PATIENT
  Age: 31 Year

DRUGS (17)
  1. BLINDED *NO SUBJECT DRUG [Suspect]
     Indication: ASPERGILLOSIS
     Dosage: UNK
     Route: 042
     Dates: start: 20090317, end: 20090330
  2. BLINDED *PLACEBO [Suspect]
     Indication: ASPERGILLOSIS
     Dosage: UNK
     Route: 042
     Dates: start: 20090317, end: 20090330
  3. BLINDED ANIDULAFUNGIN [Suspect]
     Indication: ASPERGILLOSIS
     Dosage: UNK
     Route: 042
     Dates: start: 20090317, end: 20090330
  4. VORICONAZOLE [Suspect]
     Indication: BRONCHOPULMONARY ASPERGILLOSIS
     Dosage: UNK
     Route: 042
     Dates: start: 20090317, end: 20090324
  5. VORICONAZOLE [Suspect]
     Dosage: 300 MG, 2X/DAY
     Route: 048
     Dates: start: 20090325, end: 20090419
  6. MEDROL [Concomitant]
     Indication: IMMUNOSUPPRESSION
     Dosage: 2 MG, UNK
     Dates: end: 20090430
  7. INDERAL [Concomitant]
     Indication: HYPERTENSION
     Dosage: 40 MG, 1X/DAY
  8. AMLOR [Concomitant]
     Dosage: 10 MG, 1X/DAY
  9. FOLAVIT [Concomitant]
     Dosage: 4 MG, UNK
     Dates: end: 20090430
  10. NEORAL [Concomitant]
     Indication: IMMUNOSUPPRESSION
     Dosage: 100 MG, 1X/DAY
     Dates: end: 20090430
  11. NEORAL [Concomitant]
     Dosage: 75 MG, 1X/DAY
  12. ZANTAC [Concomitant]
     Dosage: 300 MG, 1X/DAY
     Dates: end: 20090430
  13. DOCACICLO [Concomitant]
     Dosage: 800 MG, 3X/DAY
     Dates: end: 20090430
  14. ZYVOXID [Concomitant]
     Dosage: UNK
     Dates: end: 20090430
  15. ACTRAPID [Concomitant]
     Dosage: UNK
  16. INSULATARD [Concomitant]
     Dosage: UNK
  17. CONTRAMAL [Concomitant]

REACTIONS (2)
  - DISEASE PROGRESSION [None]
  - FEBRILE NEUTROPENIA [None]
